FAERS Safety Report 13713033 (Version 2)
Quarter: 2017Q3

REPORT INFORMATION
  Report Type: Spontaneous
  Country: HU (occurrence: HU)
  Receive Date: 20170704
  Receipt Date: 20170719
  Transmission Date: 20171127
  Serious: Yes (Other)
  Sender: FDA-Public Use
  Company Number: PHHY2017HU090147

PATIENT
  Age: 73 Year
  Sex: Male

DRUGS (15)
  1. MEDROL [Concomitant]
     Active Substance: METHYLPREDNISOLONE
     Indication: THROMBOCYTOPENIA
     Dosage: 1 MG/KG, UNK
     Route: 065
     Dates: start: 2016
  2. MABTHERA [Concomitant]
     Active Substance: RITUXIMAB
     Indication: THROMBOCYTOPENIA
     Dosage: UNK
     Route: 065
     Dates: start: 2016
  3. BENDAMUSTINE [Concomitant]
     Active Substance: BENDAMUSTINE
     Indication: THROMBOCYTOPENIA
     Dosage: UNK
     Route: 065
     Dates: start: 2016
  4. CYMEVENE [Concomitant]
     Active Substance: GANCICLOVIR
     Indication: CYTOMEGALOVIRUS INFECTION
     Dosage: 500 MG, BID
     Route: 042
     Dates: start: 2017
  5. CYMEVENE [Concomitant]
     Active Substance: GANCICLOVIR
     Indication: VIRAEMIA
  6. MEDROL [Concomitant]
     Active Substance: METHYLPREDNISOLONE
     Dosage: UNK (DOSE INCREASED)
     Route: 065
     Dates: start: 201610
  7. MEDROL [Concomitant]
     Active Substance: METHYLPREDNISOLONE
     Dosage: UNK
     Route: 065
     Dates: end: 2017
  8. MABTHERA [Concomitant]
     Active Substance: RITUXIMAB
     Dosage: UNK
     Route: 065
     Dates: start: 201701
  9. VINCRISTIN [Concomitant]
     Active Substance: VINCRISTINE
     Indication: THROMBOCYTOPENIA
     Dosage: 2 MG, UNK
     Route: 065
     Dates: start: 2016
  10. REVOLADE [Suspect]
     Active Substance: ELTROMBOPAG
     Indication: THROMBOCYTOPENIA
     Dosage: UNK
     Route: 065
     Dates: start: 20161114
  11. EXACYL [Concomitant]
     Active Substance: TRANEXAMIC ACID
     Indication: THROMBOCYTOPENIA
     Route: 065
  12. REVOLADE [Suspect]
     Active Substance: ELTROMBOPAG
     Dosage: 75 MG, QD
     Route: 065
     Dates: end: 20170227
  13. BENDAMUSTINE [Concomitant]
     Active Substance: BENDAMUSTINE
     Dosage: UNK
     Route: 065
     Dates: start: 201612
  14. EPOETIN ZETA [Concomitant]
     Active Substance: ERYTHROPOIETIN
     Indication: THROMBOCYTOPENIA
     Dosage: UNK
     Route: 065
     Dates: start: 2016
  15. BENDAMUSTINE [Concomitant]
     Active Substance: BENDAMUSTINE
     Dosage: UNK
     Route: 065
     Dates: start: 201701

REACTIONS (6)
  - Immune thrombocytopenic purpura [Recovering/Resolving]
  - Contusion [Unknown]
  - Gastrointestinal haemorrhage [Recovered/Resolved]
  - Petechiae [Unknown]
  - Epistaxis [Recovered/Resolved]
  - Purpura [Unknown]

NARRATIVE: CASE EVENT DATE: 201611
